FAERS Safety Report 13927220 (Version 1)
Quarter: 2017Q3

REPORT INFORMATION
  Report Type: Spontaneous
  Country: US (occurrence: US)
  Receive Date: 20170831
  Receipt Date: 20170831
  Transmission Date: 20171127
  Serious: Yes (Other)
  Sender: FDA-Public Use
  Company Number: None

PATIENT
  Sex: Female
  Weight: 67.5 kg

DRUGS (5)
  1. METHYLPRO (METHYLFOLATE, LIKE DEPLIN) [Concomitant]
  2. MULTI VITAMIN C [Concomitant]
  3. WELLBUTRIN SR [Suspect]
     Active Substance: BUPROPION HYDROCHLORIDE
     Indication: DEPRESSION
  4. TACROLIMUS. [Concomitant]
     Active Substance: TACROLIMUS
  5. MULTI VITAMIN B [Concomitant]

REACTIONS (2)
  - Product substitution issue [None]
  - Drug ineffective [None]
